FAERS Safety Report 8737376 (Version 2)
Quarter: 2012Q4

REPORT INFORMATION
  Report Type: 
  Country: BE (occurrence: BE)
  Receive Date: 20120822
  Receipt Date: 20120923
  Transmission Date: 20130627
  Serious: Yes (Hospitalization)
  Sender: FDA-Public Use
  Company Number: BE-009507513-1207BEL010134

PATIENT
  Age: 17 Year
  Sex: Male

DRUGS (1)
  1. AERIUS [Suspect]
     Indication: HYPERSENSITIVITY
     Dosage: UNK
     Route: 048
     Dates: end: 20120723

REACTIONS (2)
  - Urethral stenosis [Recovered/Resolved]
  - Urine flow decreased [Recovered/Resolved]
